FAERS Safety Report 22089351 (Version 2)
Quarter: 2023Q2

REPORT INFORMATION
  Report Type: Other
  Country: US (occurrence: US)
  Receive Date: 20230313
  Receipt Date: 20230406
  Transmission Date: 20230721
  Serious: Yes (Hospitalization, Other)
  Sender: FDA-Public Use
  Company Number: US-Covis Pharma GmbH-2023COV00520

PATIENT
  Age: 30 Year
  Sex: Female

DRUGS (1)
  1. MAKENA [Suspect]
     Active Substance: HYDROXYPROGESTERONE CAPROATE
     Indication: Premature delivery
     Route: 058
     Dates: end: 20230307

REACTIONS (6)
  - Hospitalisation [Unknown]
  - Premature delivery [Recovered/Resolved]
  - Cervix cerclage procedure [Recovered/Resolved]
  - Uterine contractions during pregnancy [Unknown]
  - Back pain [Unknown]
  - Cervical dilatation [Recovered/Resolved]

NARRATIVE: CASE EVENT DATE: 20230101
